FAERS Safety Report 21505341 (Version 1)
Quarter: 2022Q4

REPORT INFORMATION
  Report Type: Spontaneous
  Country: EG (occurrence: EG)
  Receive Date: 20221026
  Receipt Date: 20221026
  Transmission Date: 20230112
  Serious: Yes (Other)
  Sender: FDA-Public Use
  Company Number: EG-NOVOPROD-970448

PATIENT
  Age: 69 Year
  Sex: Female

DRUGS (10)
  1. GAPTIN [Concomitant]
     Indication: Bone disorder
     Dosage: TWICE WHEN NEEDED FROM 5 YEARS
     Route: 048
  2. DOROFEN [Concomitant]
     Indication: Arthropathy
     Dosage: ONC DAILY  FROM 1 YEAR
     Route: 048
  3. JUSPRIN [Concomitant]
     Indication: Cardiovascular event prophylaxis
     Dosage: ONCE DAILY  FROM 2 YEARS
     Route: 048
  4. INSULIN HUMAN [Suspect]
     Active Substance: INSULIN HUMAN
     Indication: Diabetes mellitus
     Dosage: 65 IU, QD(20U-25U-20U)
     Route: 058
  5. BENFOTIAMINE\CYANOCOBALAMIN\PYRIDOXINE HYDROCHLORIDE [Concomitant]
     Active Substance: BENFOTIAMINE\CYANOCOBALAMIN\PYRIDOXINE HYDROCHLORIDE
     Indication: Vitamin supplementation
     Dosage: ONCE DAILY  FROM 5-6 YEARS
     Route: 048
  6. ZOCOZET [Concomitant]
     Indication: Blood cholesterol abnormal
     Dosage: ONCE DAILY FOR 3 MONTHS  FROM 10 YEARS
     Route: 048
  7. ALPHINTERN [Concomitant]
     Indication: Antiinflammatory therapy
     Dosage: AFTER MEAL OR BEFORE (2 HRS) TWICE DAILY FROM 10 DAYS
     Route: 048
  8. VAXATO [Concomitant]
     Indication: Haemophilia
     Dosage: 10 MG ONCE DAILY FOR 3 MONTHS FROM 5 DAYS
     Route: 048
  9. BISOPROLOL FUMARATE [Concomitant]
     Active Substance: BISOPROLOL FUMARATE
     Indication: Hypertension
     Dosage: 5 MG, ONCE DAILY  FROM 10 YEARS
     Route: 048
  10. DANTRELAX [Concomitant]
     Indication: Muscle relaxant therapy
     Dosage: ONE TABLET WHEN NEEDED  FROM 4-5 YEARS

REACTIONS (3)
  - Fall [Unknown]
  - Fracture [Unknown]
  - Injection site pain [Recovered/Resolved]
